FAERS Safety Report 8590988-X (Version None)
Quarter: 2012Q3

REPORT INFORMATION
  Report Type: 
  Country: None (occurrence: None)
  Receive Date: 20120813
  Receipt Date: 20120726
  Transmission Date: 20120928
  Serious: No
  Sender: FDA-Public Use
  Company Number: US-009507513-1207USA011849

PATIENT

DRUGS (1)
  1. VICTRELIS [Suspect]
     Dosage: UNK MG, UNK
     Route: 048

REACTIONS (5)
  - DYSPNOEA [None]
  - PRURITUS [None]
  - URTICARIA [None]
  - THIRST [None]
  - DYSGEUSIA [None]
